FAERS Safety Report 4368331-1 (Version None)
Quarter: 2004Q2

REPORT INFORMATION
  Report Type: 
  Country: None (occurrence: None)
  Receive Date: 20040602
  Receipt Date: 20040525
  Transmission Date: 20050107
  Serious: Yes (Other)
  Sender: FDA-Public Use
  Company Number: PHNU2004DE01968

PATIENT
  Sex: Female

DRUGS (2)
  1. SYNTOCINON [Suspect]
     Indication: INDUCED LABOUR
  2. SYNTOCINON [Suspect]
     Route: 042

REACTIONS (7)
  - ABDOMINAL WALL DISORDER [None]
  - CAESAREAN SECTION [None]
  - DRUG EXPOSURE DURING PREGNANCY [None]
  - DRUG INEFFECTIVE [None]
  - HYPERTONIA [None]
  - OVERDOSE [None]
  - PREMATURE SEPARATION OF PLACENTA [None]
